FAERS Safety Report 7240353-2 (Version None)
Quarter: 2011Q1

REPORT INFORMATION
  Report Type: 
  Country: None (occurrence: None)
  Receive Date: 20110119
  Receipt Date: 20110119
  Transmission Date: 20110831
  Serious: Yes (Death)
  Sender: FDA-Public Use
  Company Number: None

PATIENT
  Age: 48 Year
  Sex: Female
  Weight: 159.5 kg

DRUGS (2)
  1. METHOTREXATE 1 G/40ML SANDOZ [Suspect]
     Indication: MANTLE CELL LYMPHOMA
     Dosage: 520 MG OVER 2 HOURS ONCE IV BOLUS, 2080 MG OVER 24 HOURS ONCE IV DRIP
     Dates: start: 20110104, end: 20110105
  2. METHOTREXATE 1 G/40ML SANDOZ [Suspect]
     Indication: MANTLE CELL LYMPHOMA
     Dosage: 520 MG OVER 2 HOURS ONCE IV BOLUS, 2080 MG OVER 24 HOURS ONCE IV DRIP
     Dates: start: 20110104, end: 20110104

REACTIONS (2)
  - RENAL FAILURE ACUTE [None]
  - DRUG CLEARANCE DECREASED [None]
